FAERS Safety Report 6654060-8 (Version None)
Quarter: 2010Q1

REPORT INFORMATION
  Report Type: 
  Country: None (occurrence: None)
  Receive Date: 20100326
  Receipt Date: 20100315
  Transmission Date: 20100710
  Serious: Yes (Other)
  Sender: FDA-Public Use
  Company Number: PHEH2008US11463

PATIENT
  Sex: Male

DRUGS (40)
  1. AREDIA [Suspect]
     Dosage: 90 MG, UNK
     Dates: start: 20020701, end: 20041001
  2. ZOMETA [Suspect]
     Dosage: 2 MG, UNK
     Dates: start: 20050126, end: 20050518
  3. VITAMIN E [Concomitant]
  4. VITAMIN C [Concomitant]
  5. DEXAMETHASONE [Concomitant]
  6. PRILOSEC [Concomitant]
  7. PROCRIT                            /00909301/ [Concomitant]
  8. THALIDOMIDE [Concomitant]
  9. PRIMAXIN [Concomitant]
  10. TOPROL-XL [Concomitant]
  11. VANCOMYCIN [Concomitant]
  12. ZITHROMAX [Concomitant]
  13. DIFLUCAN [Concomitant]
  14. LEVAQUIN [Concomitant]
  15. MAGNESIUM OXIDE [Concomitant]
  16. AMBIEN [Concomitant]
  17. SENSIPAR [Concomitant]
  18. RENAGEL [Concomitant]
  19. MULTIVITAMIN ^LAPPE^ [Concomitant]
  20. GABAPENTIN [Concomitant]
  21. VELCADE [Concomitant]
  22. ANZEMET [Concomitant]
  23. ALOXI [Concomitant]
  24. AMOXICILLIN [Concomitant]
     Dosage: 500 MG, QD
     Route: 048
  25. NEURONTIN [Concomitant]
     Dosage: UNK
     Route: 048
  26. KENALOG [Concomitant]
     Dosage: UNK
     Route: 048
  27. LORTAB [Concomitant]
     Dosage: 10 MG, PRN
     Route: 048
  28. DILAUDID [Concomitant]
     Dosage: 4 MG, PRN
  29. PERCOCET [Concomitant]
  30. AVANDIA [Concomitant]
     Dosage: UNK
  31. ROCEPHIN [Concomitant]
     Dosage: UNK
  32. COMPAZINE [Concomitant]
     Dosage: UNK
  33. OXYCODONE HCL AND ACETAMINOPHEN [Concomitant]
     Dosage: 10/325 MG, PRN
     Route: 048
  34. LUNESTA [Concomitant]
     Dosage: 3 MG, UNK
     Route: 048
  35. CIPROFLOXACIN [Concomitant]
     Dosage: UNK
     Route: 048
  36. CEFEPIME [Concomitant]
     Dosage: UNK
     Route: 048
  37. TORADOL [Concomitant]
     Dosage: 30 MG, UNK
  38. RENA-VITE [Concomitant]
     Dosage: UNK
     Route: 048
  39. NORVASC [Concomitant]
     Dosage: 5 MG, QD
     Route: 048
  40. ACYCLOVIR [Concomitant]
     Dosage: UNK

REACTIONS (71)
  - ACIDOSIS [None]
  - ANAEMIA [None]
  - ANXIETY [None]
  - ARTHRALGIA [None]
  - ASTHENIA [None]
  - BACK PAIN [None]
  - BONE OPERATION [None]
  - BUNDLE BRANCH BLOCK RIGHT [None]
  - CARPAL TUNNEL SYNDROME [None]
  - CHEST PAIN [None]
  - DEBRIDEMENT [None]
  - DEFORMITY [None]
  - DENTAL CARIES [None]
  - DEVICE RELATED SEPSIS [None]
  - DIZZINESS [None]
  - DYSPNOEA [None]
  - DYSURIA [None]
  - EMOTIONAL DISTRESS [None]
  - ENTEROBACTER SEPSIS [None]
  - FISTULA [None]
  - GENERAL PHYSICAL HEALTH DETERIORATION [None]
  - GINGIVAL ABSCESS [None]
  - GINGIVAL INFECTION [None]
  - HAEMODIALYSIS [None]
  - HEADACHE [None]
  - HERPES ZOSTER [None]
  - HYPERCALCAEMIA [None]
  - HYPERPARATHYROIDISM [None]
  - HYPERPHOSPHATAEMIA [None]
  - HYPERTENSION [None]
  - IMPAIRED HEALING [None]
  - INFECTION [None]
  - INJURY [None]
  - INTERCOSTAL NEURALGIA [None]
  - INTERVERTEBRAL DISC COMPRESSION [None]
  - INTERVERTEBRAL DISC DEGENERATION [None]
  - INTERVERTEBRAL DISC PROTRUSION [None]
  - METASTASES TO BONE [None]
  - MUSCULAR WEAKNESS [None]
  - MYOFASCIAL PAIN SYNDROME [None]
  - NAUSEA [None]
  - NEPHROLITHIASIS [None]
  - NEUROPATHY PERIPHERAL [None]
  - OEDEMA PERIPHERAL [None]
  - ORAL SURGERY [None]
  - OSTEOARTHRITIS [None]
  - OSTEOMYELITIS [None]
  - OSTEONECROSIS [None]
  - OSTEOPENIA [None]
  - OSTEOPOROSIS [None]
  - PAIN [None]
  - PANCYTOPENIA [None]
  - PELVIC FRACTURE [None]
  - PERIARTHRITIS [None]
  - PHYSICAL DISABILITY [None]
  - PNEUMONIA [None]
  - PYREXIA [None]
  - RENAL FAILURE ACUTE [None]
  - RENAL FAILURE CHRONIC [None]
  - RIB FRACTURE [None]
  - ROTATOR CUFF SYNDROME [None]
  - SCAR [None]
  - SHOULDER DEFORMITY [None]
  - SPINAL FRACTURE [None]
  - STREPTOCOCCAL SEPSIS [None]
  - SUBDURAL HAEMATOMA [None]
  - THROMBOCYTOPENIA [None]
  - TOOTH ABSCESS [None]
  - TOOTH EXTRACTION [None]
  - TOOTH IMPACTED [None]
  - UNEVALUABLE EVENT [None]
